FAERS Safety Report 15719060 (Version 1)
Quarter: 2018Q4

REPORT INFORMATION
  Report Type: Spontaneous
  Country: IT (occurrence: IT)
  Receive Date: 20181213
  Receipt Date: 20181213
  Transmission Date: 20190205
  Serious: Yes (Hospitalization)
  Sender: FDA-Public Use
  Company Number: IT-PFIZER INC-18746

PATIENT
  Age: 41 Year
  Sex: Female

DRUGS (10)
  1. TAVOR (LORAZEPAM) [Concomitant]
     Active Substance: LORAZEPAM
     Dosage: 1 MG, UNK
  2. MEDROL [METHYLPREDNISOLONE] [Concomitant]
     Dosage: 4 MG, UNK
     Route: 048
  3. LEDERFOLIN [Concomitant]
     Active Substance: LEUCOVORIN CALCIUM
     Dosage: 7.5 MG, UNK
     Route: 048
  4. ALENDROS [Concomitant]
     Active Substance: ALENDRONATE SODIUM
     Dosage: 70 MG, UNK
     Route: 048
  5. HUMIRA [Suspect]
     Active Substance: ADALIMUMAB
     Indication: RHEUMATOID ARTHRITIS
     Dosage: 40 MG, CYCLIC
     Route: 058
     Dates: start: 20031205
  6. VOLTAREN [DICLOFENAC] [Concomitant]
     Active Substance: DICLOFENAC SODIUM
     Dosage: 100 MG, UNK
     Route: 048
  7. ANTRA [OMEPRAZOLE] [Concomitant]
     Dosage: 20 MG, UNK
     Route: 048
  8. TRANSTEC [Concomitant]
     Active Substance: BUPRENORPHINE
     Dosage: 35 UG, UNK
  9. METHOTREXATE. [Suspect]
     Active Substance: METHOTREXATE
     Indication: RHEUMATOID ARTHRITIS
     Dosage: 10 MG, WEEKLY
     Route: 030
     Dates: start: 20050505
  10. CACIT [CALCIUM CARBONATE] [Concomitant]
     Dosage: 1000 MG, UNK
     Route: 048

REACTIONS (3)
  - Uterine leiomyoma [Recovered/Resolved]
  - Metrorrhagia [Recovered/Resolved]
  - Iron deficiency anaemia [Recovered/Resolved]

NARRATIVE: CASE EVENT DATE: 200507
